FAERS Safety Report 5429321-0 (Version None)
Quarter: 2007Q3

REPORT INFORMATION
  Report Type: 
  Country: None (occurrence: None)
  Receive Date: 20070827
  Receipt Date: 20070806
  Transmission Date: 20080115
  Serious: Yes (Hospitalization)
  Sender: FDA-Public Use
  Company Number: GXKR2007BR06788

PATIENT
  Age: 56 Year
  Sex: Male

DRUGS (1)
  1. ALLOPURINOL [Suspect]
     Indication: GOUT
     Dosage: 300 MG, QD, ORAL
     Route: 048
     Dates: start: 20070710

REACTIONS (2)
  - BLOOD PRESSURE INCREASED [None]
  - MUSCULAR WEAKNESS [None]
